FAERS Safety Report 6103204-5 (Version None)
Quarter: 2009Q1

REPORT INFORMATION
  Report Type: 
  Country: None (occurrence: None)
  Receive Date: 20090227
  Receipt Date: 20090217
  Transmission Date: 20090719
  Serious: Yes (Hospitalization)
  Sender: FDA-Public Use
  Company Number: GXKR2009DE02069

PATIENT
  Age: 78 Year
  Sex: Male

DRUGS (6)
  1. PREDNISONE [Suspect]
     Indication: MULTIPLE MYELOMA
     Dosage: 135 MG/DAY, (2 MG/KG) D 1-4
     Dates: start: 20070501
  2. REVLIMID [Suspect]
     Indication: MULTIPLE MYELOMA
     Dosage: 10 MG.DAY, D 1-21, UNKNOWN
     Dates: start: 20070501
  3. MELPHALAN (MELPHALAN) [Suspect]
     Indication: MULTIPLE MYELOMA
     Dosage: 12 MG/DAY (0.18 MG/KG), D 1-4
     Dates: start: 20070501
  4. PANTOPRAZOLE SODIUM [Concomitant]
  5. XIPAMIDE (XIPAMIDE) [Concomitant]
  6. ACETYLSALICYLIC ACID SRT [Concomitant]

REACTIONS (13)
  - BILIRUBIN CONJUGATED INCREASED [None]
  - BLOOD ALKALINE PHOSPHATASE INCREASED [None]
  - BLOOD BILIRUBIN INCREASED [None]
  - CHOLANGITIS [None]
  - CHOLESTASIS [None]
  - CHROMATURIA [None]
  - FAECES PALE [None]
  - FATIGUE [None]
  - GAMMA-GLUTAMYLTRANSFERASE INCREASED [None]
  - HEPATOMEGALY [None]
  - LIGHT CHAIN DISEASE [None]
  - NAUSEA [None]
  - PRURITUS [None]
